FAERS Safety Report 8387881-4 (Version None)
Quarter: 2012Q2

REPORT INFORMATION
  Report Type: 
  Country: None (occurrence: None)
  Receive Date: 20120525
  Receipt Date: 20120522
  Transmission Date: 20120825
  Serious: Yes (Other)
  Sender: FDA-Public Use
  Company Number: US-PFIZER INC-2012108198

PATIENT
  Sex: Male
  Weight: 83.9 kg

DRUGS (9)
  1. MULTI-VITAMINS [Concomitant]
     Dosage: UNK
  2. LIPITOR [Suspect]
     Dosage: 20 MG, 1X/DAY
  3. ATORVASTATIN CALCIUM [Suspect]
     Dosage: UNK
  4. ASPIRIN [Concomitant]
     Dosage: UNK
  5. LIPITOR [Suspect]
     Indication: BLOOD CHOLESTEROL INCREASED
     Dosage: 10 MG, 1X/DAY
     Route: 048
     Dates: start: 20060101
  6. CALCIUM [Concomitant]
     Dosage: UNK
  7. FISH OIL [Concomitant]
     Dosage: UNK
  8. TRIGOSAMINE [Suspect]
     Dosage: UNK
  9. LISINOPRIL [Concomitant]
     Dosage: UNK

REACTIONS (3)
  - DRUG EFFECT DECREASED [None]
  - MYALGIA [None]
  - HYPERTENSION [None]
